FAERS Safety Report 21254651 (Version 1)
Quarter: 2022Q3

REPORT INFORMATION
  Report Type: Spontaneous
  Country: US (occurrence: None)
  Receive Date: 20220824
  Receipt Date: 20220824
  Transmission Date: 20221027
  Serious: Yes (Other)
  Sender: FDA-Public Use
  Company Number: None

PATIENT
  Sex: Male

DRUGS (1)
  1. SUMATRIPTAN SUCCINATE AND NAPROXEN SODIUM [Suspect]
     Active Substance: NAPROXEN SODIUM\SUMATRIPTAN SUCCINATE

REACTIONS (1)
  - Drug ineffective [None]
